FAERS Safety Report 4585494-3 (Version None)
Quarter: 2005Q1

REPORT INFORMATION
  Report Type: 
  Country: None (occurrence: None)
  Receive Date: 20050214
  Receipt Date: 20040726
  Transmission Date: 20050727
  Serious: Yes (Life-Threatening, Hospitalization)
  Sender: FDA-Public Use
  Company Number: GXKR2004NL00710

PATIENT
  Age: 72 Year
  Sex: Female

DRUGS (6)
  1. METFORMIN HCL [Suspect]
     Indication: DIABETES MELLITUS
     Dosage: 850 MG, TID, ORAL
     Route: 048
  2. ENALAPRIL MALEATE [Concomitant]
  3. GLYBURIDE [Concomitant]
  4. DIPYRIDAMOLE [Concomitant]
  5. ASPIRINIE (ACETYLSALICYLIC ACID) [Concomitant]
  6. DOXYCYCLINE [Concomitant]

REACTIONS (22)
  - ANOREXIA [None]
  - BLOOD CREATININE INCREASED [None]
  - BLOOD GLUCOSE INCREASED [None]
  - BLOOD POTASSIUM INCREASED [None]
  - BLOOD PRESSURE DECREASED [None]
  - BLOOD UREA INCREASED [None]
  - BUNDLE BRANCH BLOCK LEFT [None]
  - CARDIAC ARREST [None]
  - CIRCULATORY COLLAPSE [None]
  - COUGH [None]
  - DEHYDRATION [None]
  - DIARRHOEA [None]
  - DYSPNOEA [None]
  - HAEMODIALYSIS [None]
  - HAEMOGLOBIN DECREASED [None]
  - HYPOTHERMIA [None]
  - LACTIC ACIDOSIS [None]
  - PCO2 DECREASED [None]
  - PO2 INCREASED [None]
  - RESPIRATORY RATE INCREASED [None]
  - SHOCK [None]
  - WHITE BLOOD CELL COUNT INCREASED [None]
